FAERS Safety Report 4619912-9 (Version None)
Quarter: 2005Q1

REPORT INFORMATION
  Report Type: 
  Country: None (occurrence: None)
  Receive Date: 20050321
  Receipt Date: 20050321
  Transmission Date: 20050727
  Serious: Yes (Death)
  Sender: FDA-Public Use
  Company Number: None

PATIENT
  Age: 69 Year
  Sex: Male
  Weight: 94.3482 kg

DRUGS (10)
  1. WARFARIN SODIUM [Suspect]
     Dates: start: 20041102
  2. HYDROCHLOROTHOZIDE [Concomitant]
  3. METFORMIN HCL [Concomitant]
  4. CIMIDINE [Concomitant]
  5. LOVASTATIN [Concomitant]
  6. METOPROLOL TARTRATE [Concomitant]
  7. GLYBURIDE [Concomitant]
  8. DIVAN [Concomitant]
  9. ENALAPRIL [Concomitant]
  10. FOLIC ACID [Concomitant]

REACTIONS (2)
  - COMA [None]
  - INTRAVENTRICULAR HAEMORRHAGE [None]
